FAERS Safety Report 18845635 (Version 1)
Quarter: 2021Q1

REPORT INFORMATION
  Report Type: Spontaneous
  Country: CN (occurrence: CN)
  Receive Date: 20210204
  Receipt Date: 20210204
  Transmission Date: 20210419
  Serious: Yes (Other)
  Sender: FDA-Public Use
  Company Number: CN-ROCHE-2759066

PATIENT
  Age: 19 Year
  Sex: Female
  Weight: 50 kg

DRUGS (4)
  1. HYDROCORTISONE SODIUM SUCCINATE [Concomitant]
     Active Substance: HYDROCORTISONE SODIUM SUCCINATE
     Dates: start: 20210113
  2. DESLORATADINE CITRATE DISODIUM [Concomitant]
     Active Substance: DESLORATADINE
     Route: 048
     Dates: start: 20210113
  3. MABTHERA [Suspect]
     Active Substance: RITUXIMAB
     Indication: STEM CELL TRANSPLANT
     Route: 041
     Dates: start: 20210113, end: 20210113
  4. DEXAMETHASONE. [Concomitant]
     Active Substance: DEXAMETHASONE
     Route: 040
     Dates: start: 20210113

REACTIONS (12)
  - Lip oedema [Recovered/Resolved]
  - Oedema mouth [Recovered/Resolved]
  - Heart rate increased [Recovered/Resolved]
  - Off label use [Unknown]
  - Intranasal hypoaesthesia [Recovered/Resolved]
  - Pruritus [Recovering/Resolving]
  - Hypoaesthesia oral [Recovered/Resolved]
  - Laryngeal oedema [Recovered/Resolved]
  - Hypoaesthesia [Recovered/Resolved]
  - Rash [Recovering/Resolving]
  - Tachypnoea [Recovered/Resolved]
  - Intentional product use issue [Unknown]

NARRATIVE: CASE EVENT DATE: 20210113
